FAERS Safety Report 18638009 (Version 3)
Quarter: 2021Q1

REPORT INFORMATION
  Report Type: Spontaneous
  Country: US (occurrence: US)
  Receive Date: 20201218
  Receipt Date: 20210329
  Transmission Date: 20210419
  Serious: No
  Sender: FDA-Public Use
  Company Number: NVSC2020US332813

PATIENT
  Sex: Male

DRUGS (1)
  1. COSENTYX [Suspect]
     Active Substance: SECUKINUMAB
     Indication: PRODUCT USED FOR UNKNOWN INDICATION
     Dosage: 150 MG (2 PENS)
     Route: 065

REACTIONS (4)
  - Device leakage [Unknown]
  - Product dose omission issue [Unknown]
  - Needle issue [Unknown]
  - Device issue [Unknown]

NARRATIVE: CASE EVENT DATE: 20201214
